FAERS Safety Report 8195522-4 (Version None)
Quarter: 2012Q1

REPORT INFORMATION
  Report Type: 
  Country: None (occurrence: None)
  Receive Date: 20120308
  Receipt Date: 20120305
  Transmission Date: 20120608
  Serious: Yes (Hospitalization)
  Sender: FDA-Public Use
  Company Number: US-PFIZER INC-2012058408

PATIENT
  Sex: Female

DRUGS (2)
  1. PRILOSEC [Suspect]
     Dosage: UNK
     Dates: end: 20120101
  2. PREMARIN [Suspect]
     Indication: SURGERY
     Dosage: 0.625 MG, EVERY THIRD DAY
     Dates: end: 20120110

REACTIONS (6)
  - WEIGHT DECREASED [None]
  - REACTION TO COLOURING [None]
  - HOT FLUSH [None]
  - SWELLING FACE [None]
  - HEAD TITUBATION [None]
  - CONDITION AGGRAVATED [None]
